FAERS Safety Report 6531968-5 (Version None)
Quarter: 2010Q1

REPORT INFORMATION
  Report Type: 
  Country: None (occurrence: None)
  Receive Date: 20100108
  Receipt Date: 20100104
  Transmission Date: 20100710
  Serious: Yes (Death)
  Sender: FDA-Public Use
  Company Number: US-PFIZER INC-2009302854

PATIENT
  Sex: Female

DRUGS (3)
  1. REVATIO [Suspect]
     Dosage: 20 MG, 3X/DAY
     Dates: start: 20070601
  2. TRACLEER [Concomitant]
     Dates: start: 20071001
  3. ILOPROST [Concomitant]
     Dates: start: 20080101

REACTIONS (1)
  - DEATH [None]
